FAERS Safety Report 9242781 (Version 2)
Quarter: 2013Q2

REPORT INFORMATION
  Report Type: Spontaneous
  Country: US (occurrence: US)
  Receive Date: 20130419
  Receipt Date: 20130531
  Transmission Date: 20140414
  Serious: Yes (Other)
  Sender: FDA-Public Use
  Company Number: US-ROCHE-1057243

PATIENT
  Age: 55 Year
  Sex: Female
  Weight: 133 kg

DRUGS (4)
  1. ACCUTANE [Suspect]
     Indication: ACNE CYSTIC
     Dosage: THERAPY FROM 1983 OR 1984
     Route: 065
     Dates: start: 1983
  2. ACCUTANE [Suspect]
     Route: 065
     Dates: start: 1990
  3. ACCUTANE [Suspect]
     Route: 065
     Dates: start: 1997
  4. LEXAPRO [Concomitant]

REACTIONS (6)
  - Colitis ulcerative [Unknown]
  - Inflammatory bowel disease [Unknown]
  - Rheumatoid arthritis [Unknown]
  - Lip dry [Unknown]
  - Chapped lips [Unknown]
  - Fatigue [Unknown]
